FAERS Safety Report 4623461-1 (Version None)
Quarter: 2005Q1

REPORT INFORMATION
  Report Type: 
  Country: None (occurrence: None)
  Receive Date: 20050330
  Receipt Date: 20050316
  Transmission Date: 20050727
  Serious: Yes (Other)
  Sender: FDA-Public Use
  Company Number: MK200503-0232-1

PATIENT
  Age: 48 Year
  Sex: Female

DRUGS (5)
  1. TOFRANIL TAB [Suspect]
     Indication: BIPOLAR DISORDER
  2. CLONAZEPAM [Concomitant]
  3. LITHIUM [Concomitant]
  4. MILNACIPRAN [Concomitant]
  5. VALPROIC ACID [Concomitant]

REACTIONS (12)
  - ABNORMAL BEHAVIOUR [None]
  - ACTIVITIES OF DAILY LIVING IMPAIRED [None]
  - BIPOLAR I DISORDER [None]
  - CONDITION AGGRAVATED [None]
  - CONSTIPATION [None]
  - DIZZINESS [None]
  - DYSURIA [None]
  - HYPOMANIA [None]
  - PSYCHOMOTOR HYPERACTIVITY [None]
  - SUICIDAL IDEATION [None]
  - SUICIDE ATTEMPT [None]
  - THIRST [None]
